FAERS Safety Report 20559636 (Version 1)
Quarter: 2022Q1

REPORT INFORMATION
  Report Type: Spontaneous
  Country: US (occurrence: None)
  Receive Date: 20220304
  Receipt Date: 20220304
  Transmission Date: 20220423
  Serious: Yes (Death)
  Sender: FDA-Public Use
  Company Number: None

PATIENT
  Age: 66 Year
  Sex: Female

DRUGS (1)
  1. BOSENTAN [Suspect]
     Active Substance: BOSENTAN
     Indication: Pulmonary hypertension
     Dosage: 62.5MG BID ORAL?
     Route: 048
     Dates: start: 20211104, end: 202202

REACTIONS (5)
  - Fluid retention [None]
  - Swelling [None]
  - Exercise lack of [None]
  - Pneumothorax [None]
  - Cardiac arrest [None]

NARRATIVE: CASE EVENT DATE: 20220222
